FAERS Safety Report 5267542-0 (Version None)
Quarter: 2007Q1

REPORT INFORMATION
  Report Type: 
  Country: None (occurrence: None)
  Receive Date: 20061213
  Receipt Date: 20030714
  Transmission Date: 20070707
  Serious: No
  Sender: FDA-Public Use
  Company Number: 2003UW08910

PATIENT
  Age: 72 Year
  Sex: Female
  Weight: 63.5036 kg

DRUGS (2)
  1. NOLVADEX [Suspect]
     Indication: BREAST CANCER
     Dosage: 10 MG BID PO
     Route: 048
     Dates: start: 20010101
  2. OCUVITE [Concomitant]

REACTIONS (1)
  - VISUAL DISTURBANCE [None]
